FAERS Safety Report 9702029 (Version 1)
Quarter: 2013Q4

REPORT INFORMATION
  Report Type: Spontaneous
  Country: US (occurrence: US)
  Receive Date: 20131121
  Receipt Date: 20131121
  Transmission Date: 20140711
  Serious: Yes (Hospitalization)
  Sender: FDA-Public Use
  Company Number: US-ASTRAZENECA-2013SE82810

PATIENT
  Age: 74 Year
  Sex: Female
  Weight: 61.2 kg

DRUGS (6)
  1. ENTOCORT EC [Suspect]
     Indication: GASTROINTESTINAL INFLAMMATION
     Dosage: GENERIC
     Route: 048
  2. ENTOCORT EC [Suspect]
     Indication: GASTROINTESTINAL INFLAMMATION
     Route: 048
     Dates: start: 2010
  3. FOLIC ACID [Concomitant]
     Indication: SUPPLEMENTATION THERAPY
     Route: 048
  4. VITAMIN D [Concomitant]
     Indication: OSTEOPOROSIS
     Route: 048
  5. B12 [Concomitant]
     Indication: SUPPLEMENTATION THERAPY
     Route: 042
  6. FERROUS SULFATE [Concomitant]
     Indication: ANAEMIA
     Dosage: DAILY
     Route: 048

REACTIONS (5)
  - Aortic aneurysm [Recovered/Resolved]
  - Diarrhoea [Recovered/Resolved]
  - Drug intolerance [Recovered/Resolved]
  - Intentional drug misuse [Not Recovered/Not Resolved]
  - Off label use [Not Recovered/Not Resolved]
